FAERS Safety Report 23769945 (Version 1)
Quarter: 2024Q2

REPORT INFORMATION
  Report Type: Spontaneous
  Country: US (occurrence: US)
  Receive Date: 20240422
  Receipt Date: 20240422
  Transmission Date: 20240716
  Serious: Yes (Hospitalization, Congenital Anomaly, Other)
  Sender: FDA-Public Use
  Company Number: US-INDIVIOR UK LIMITED-INDV-144332-2024

PATIENT

DRUGS (2)
  1. SUBUTEX [Suspect]
     Active Substance: BUPRENORPHINE HYDROCHLORIDE
     Indication: Product used for unknown indication
     Dosage: UNK
     Route: 064
  2. SUBUTEX [Suspect]
     Active Substance: BUPRENORPHINE HYDROCHLORIDE
     Dosage: UNK
     Route: 063

REACTIONS (5)
  - Congenital emphysema [Recovered/Resolved]
  - Hypoglycaemia neonatal [Unknown]
  - Poor feeding infant [Unknown]
  - Exposure via breast milk [Unknown]
  - Foetal exposure during pregnancy [Recovered/Resolved]
